FAERS Safety Report 5672413-1 (Version None)
Quarter: 2008Q1

REPORT INFORMATION
  Report Type: 
  Country: None (occurrence: None)
  Receive Date: 20080311
  Receipt Date: 20071213
  Transmission Date: 20080703
  Serious: Yes (Other)
  Sender: FDA-Public Use
  Company Number: 002#2#2007-00141

PATIENT
  Age: 88 Year
  Sex: Male
  Weight: 80.7403 kg

DRUGS (9)
  1. NEUPRO [Suspect]
     Indication: PARKINSON'S DISEASE
     Dosage: 2MG/24H, 1 IN 1 D, TRANSDERMAL
     Route: 062
     Dates: start: 20070801, end: 20070806
  2. OMEPRAZOLE [Suspect]
     Indication: DYSPEPSIA
     Dosage: 20 MG , 1 IN 1 D, ORAL
     Route: 048
  3. SYNTHROID [Concomitant]
  4. METOPROLOL TARTRATE [Concomitant]
  5. CARBIDOPA AND LEVODOPA [Concomitant]
  6. PAXIL [Concomitant]
  7. MIRAPEX [Concomitant]
  8. SINEMET [Concomitant]
  9. LISINOPRIL [Concomitant]

REACTIONS (3)
  - BLOOD PRESSURE INCREASED [None]
  - CONDITION AGGRAVATED [None]
  - TREMOR [None]
